FAERS Safety Report 9325132 (Version 1)
Quarter: 2013Q2

REPORT INFORMATION
  Report Type: Spontaneous
  Country: US (occurrence: US)
  Receive Date: 20130603
  Receipt Date: 20130603
  Transmission Date: 20140414
  Serious: Yes (Death, Other)
  Sender: FDA-Public Use
  Company Number: US-RB-054502-13

PATIENT
  Age: 0 Year
  Sex: Male

DRUGS (3)
  1. SUBOXONE TABLET [Suspect]
     Indication: DRUG DEPENDENCE
     Route: 064
     Dates: start: 200811, end: 20081209
  2. METHADONE [Suspect]
     Indication: DRUG DEPENDENCE
     Dosage: DOSING DETAILS UNKNOWN
     Route: 064
     Dates: start: 200805, end: 200811
  3. HEROIN [Suspect]
     Indication: DRUG DEPENDENCE
     Dosage: DOSING DETAILS UNKNOWN
     Route: 064
     Dates: start: 200803, end: 200805

REACTIONS (2)
  - Foetal exposure during pregnancy [Recovered/Resolved]
  - Sudden infant death syndrome [Fatal]
